FAERS Safety Report 5417131-X (Version None)
Quarter: 2007Q3

REPORT INFORMATION
  Report Type: 
  Country: None (occurrence: None)
  Receive Date: 20070718
  Receipt Date: 20060628
  Transmission Date: 20080115
  Serious: Yes (Hospitalization, Other)
  Sender: FDA-Public Use
  Company Number: 2005134619

PATIENT
  Age: 60 Year
  Sex: Female
  Weight: 86.1834 kg

DRUGS (3)
  1. CELEBREX [Suspect]
     Indication: ARTHRALGIA
     Dosage: (200 MG, TWO OR THREE TIMES DAILY
     Dates: start: 20020502, end: 20031224
  2. VIOXX [Suspect]
     Indication: ILL-DEFINED DISORDER
  3. ULTRAM [Concomitant]

REACTIONS (1)
  - EMBOLISM [None]
